FAERS Safety Report 5444990-7 (Version None)
Quarter: 2007Q3

REPORT INFORMATION
  Report Type: 
  Country: None (occurrence: None)
  Receive Date: 20070904
  Receipt Date: 20070904
  Transmission Date: 20080115
  Serious: Yes (Life-Threatening)
  Sender: FDA-Public Use
  Company Number: None

PATIENT
  Age: 43 Year
  Sex: Male
  Weight: 123.832 kg

DRUGS (6)
  1. VISIPAQUE [Suspect]
     Indication: SCAN WITH CONTRAST
     Dosage: 75-150 ML ONE DOSE IV BOLUS
     Route: 040
     Dates: start: 20070716, end: 20070716
  2. LIPITOR [Concomitant]
  3. HYDROCHLOROTHIAZIDE [Concomitant]
  4. LISINOPRIL [Concomitant]
  5. METFORMIN HCL [Concomitant]
  6. NPH INSULIN [Concomitant]

REACTIONS (2)
  - ANAPHYLACTIC REACTION [None]
  - CONTRAST MEDIA ALLERGY [None]
